FAERS Safety Report 8589120-8 (Version None)
Quarter: 2012Q3

REPORT INFORMATION
  Report Type: 
  Country: None (occurrence: None)
  Receive Date: 20120813
  Receipt Date: 20120803
  Transmission Date: 20120928
  Serious: Yes (Hospitalization)
  Sender: FDA-Public Use
  Company Number: US-ASTELLAS-2012US004589

PATIENT
  Sex: Female

DRUGS (1)
  1. ERLOTINIB HYDROCHLORIDE [Suspect]
     Indication: BRONCHIAL CARCINOMA
     Dosage: 100 MG, UID/QD
     Route: 048
     Dates: start: 20120406

REACTIONS (5)
  - RASH [None]
  - CHEST DISCOMFORT [None]
  - STOMATITIS [None]
  - INCORRECT DOSE ADMINISTERED [None]
  - CHEST PAIN [None]
